FAERS Safety Report 9280126 (Version 1)
Quarter: 2013Q2

REPORT INFORMATION
  Report Type: Spontaneous
  Country: US (occurrence: None)
  Receive Date: 20130507
  Receipt Date: 20130507
  Transmission Date: 20140414
  Serious: Yes (Other)
  Sender: FDA-Public Use
  Company Number: None

PATIENT
  Age: 83 Year
  Sex: Female
  Weight: 64.86 kg

DRUGS (1)
  1. LEVOFLOXACIN [Suspect]
     Route: 048
     Dates: start: 20101205, end: 20121210

REACTIONS (5)
  - Tendon pain [None]
  - Ligament pain [None]
  - Gait disturbance [None]
  - Gait disturbance [None]
  - Discomfort [None]
